FAERS Safety Report 21068729 (Version 1)
Quarter: 2022Q3

REPORT INFORMATION
  Report Type: Spontaneous
  Country: US (occurrence: None)
  Receive Date: 20220711
  Receipt Date: 20220711
  Transmission Date: 20221027
  Serious: No
  Sender: FDA-Public Use
  Company Number: None

PATIENT
  Sex: Female

DRUGS (1)
  1. XELJANZ XR [Suspect]
     Active Substance: TOFACITINIB CITRATE
     Indication: Rheumatoid arthritis
     Dosage: 11MG EVERY DAY BY MOUTH?
     Route: 048

REACTIONS (3)
  - Therapeutic product effect incomplete [None]
  - Musculoskeletal stiffness [None]
  - Therapy cessation [None]
